FAERS Safety Report 13706223 (Version 1)
Quarter: 2017Q2

REPORT INFORMATION
  Report Type: Spontaneous
  Country: FR (occurrence: FR)
  Receive Date: 20170630
  Receipt Date: 20170630
  Transmission Date: 20170830
  Serious: Yes (Life-Threatening, Hospitalization)
  Sender: FDA-Public Use
  Company Number: FR-PFIZER INC-2017278305

PATIENT
  Sex: Female
  Weight: 1.4 kg

DRUGS (10)
  1. HYDREA [Suspect]
     Active Substance: HYDROXYUREA
     Dosage: UNK
     Route: 064
     Dates: start: 20130425
  2. VESANOID [Suspect]
     Active Substance: TRETINOIN
     Dosage: 70 MG/24 HOURS
     Route: 064
     Dates: start: 20130421
  3. ARACYTINE [Suspect]
     Active Substance: CYTARABINE
     Dosage: 75 MG, 2X/DAY (FOR 5 DAYS)
     Route: 064
     Dates: start: 20130426
  4. POLARAMINE [Concomitant]
     Active Substance: DEXCHLORPHENIRAMINE MALEATE
     Dosage: UNK
     Route: 064
     Dates: start: 201305
  5. CHLORHEXIDIN [Concomitant]
     Active Substance: CHLORHEXIDINE
     Indication: FOLLICULITIS
     Dosage: UNK
     Route: 064
     Dates: start: 201305
  6. CLOTTAFACT [Concomitant]
     Active Substance: FIBRINOGEN HUMAN
     Indication: DISSEMINATED INTRAVASCULAR COAGULATION
     Dosage: UNK
     Route: 064
     Dates: start: 20130421
  7. CELESTENE [Concomitant]
     Active Substance: BETAMETHASONE
     Dosage: UNK
     Route: 064
     Dates: start: 20130421, end: 20130421
  8. CELESTENE [Concomitant]
     Active Substance: BETAMETHASONE
     Dosage: UNK
     Route: 064
     Dates: start: 20130422, end: 20130422
  9. DEXAMETHASONE. [Suspect]
     Active Substance: DEXAMETHASONE
     Indication: PROPHYLAXIS
     Dosage: UNK
     Route: 064
     Dates: start: 201304, end: 20130503
  10. CLAMOXYL [Concomitant]
     Active Substance: AMOXICILLIN\CLAVULANIC ACID
     Indication: FOLLICULITIS
     Dosage: UNK
     Route: 064
     Dates: start: 201305

REACTIONS (2)
  - Premature delivery [Recovered/Resolved]
  - Maternal exposure during pregnancy [Recovered/Resolved]

NARRATIVE: CASE EVENT DATE: 20130421
